FAERS Safety Report 4754295-5 (Version None)
Quarter: 2005Q3

REPORT INFORMATION
  Report Type: 
  Country: None (occurrence: None)
  Receive Date: 20050825
  Receipt Date: 20050825
  Transmission Date: 20060218
  Serious: Yes (Hospitalization)
  Sender: FDA-Public Use
  Company Number: None

PATIENT
  Age: 64 Year
  Sex: Female

DRUGS (5)
  1. CAMPATH [Suspect]
     Indication: PERIPHERAL T-CELL LYMPHOMA UNSPECIFIED
     Dosage: Q 3 WEEKS X 8 COURSES
     Dates: start: 20050406
  2. CYTOXAN [Suspect]
     Dosage: Q 3 WEEKS X 8 COURSES
     Dates: start: 20040831
  3. DOXORUBICIN 90 MG [Suspect]
  4. PREDNISONE [Suspect]
  5. VINCRISTINE [Suspect]

REACTIONS (2)
  - CYTOMEGALOVIRUS INFECTION [None]
  - DIARRHOEA [None]
